FAERS Safety Report 13914094 (Version 1)
Quarter: 2017Q3

REPORT INFORMATION
  Report Type: Spontaneous
  Country: US (occurrence: US)
  Receive Date: 20170828
  Receipt Date: 20170828
  Transmission Date: 20171127
  Serious: No
  Sender: FDA-Public Use
  Company Number: US-ROCHE-1129147

PATIENT
  Sex: Male
  Weight: 35.4 kg

DRUGS (3)
  1. AMITRIPTYLINE [Concomitant]
     Active Substance: AMITRIPTYLINE
     Route: 048
  2. ZOLOFT [Concomitant]
     Active Substance: SERTRALINE HYDROCHLORIDE
     Route: 048
  3. NUTROPIN [Suspect]
     Active Substance: SOMATROPIN
     Indication: GROWTH HORMONE DEFICIENCY
     Route: 058

REACTIONS (11)
  - Seborrhoea [Unknown]
  - Drug dose omission [Unknown]
  - Mood swings [Unknown]
  - Dizziness [Unknown]
  - Hair growth abnormal [Unknown]
  - Fatigue [Unknown]
  - Scrotal erythema [Unknown]
  - Inflammation [Unknown]
  - Orthostatic hypotension [Unknown]
  - Skin atrophy [Unknown]
  - Arthralgia [Unknown]
